FAERS Safety Report 5646440-4 (Version None)
Quarter: 2008Q1

REPORT INFORMATION
  Report Type: 
  Country: None (occurrence: None)
  Receive Date: 20080228
  Receipt Date: 20080228
  Transmission Date: 20080703
  Serious: Yes (Hospitalization)
  Sender: FDA-Public Use
  Company Number: None

PATIENT
  Sex: Male
  Weight: 63.5036 kg

DRUGS (5)
  1. DILANTIN [Suspect]
     Indication: CONVULSION
     Dosage: 200MG PO BID PRIOR TO ADMISSION
     Route: 048
  2. NEURONTIN [Concomitant]
  3. EXELON [Concomitant]
  4. ASPIRIN [Concomitant]
  5. VITAMIN E [Concomitant]

REACTIONS (4)
  - ANTICONVULSANT DRUG LEVEL INCREASED [None]
  - CONFUSIONAL STATE [None]
  - MENTAL STATUS CHANGES [None]
  - RESTLESSNESS [None]
